FAERS Safety Report 26199736 (Version 1)
Quarter: 2025Q4

REPORT INFORMATION
  Report Type: Spontaneous
  Country: AU (occurrence: AU)
  Receive Date: 20251225
  Receipt Date: 20251225
  Transmission Date: 20260117
  Serious: Yes (Other)
  Sender: ROCHE
  Company Number: AU-ROCHE-10000464592

PATIENT
  Age: 18 Year
  Sex: Female

DRUGS (2)
  1. RITUXIMAB [Suspect]
     Active Substance: RITUXIMAB
     Indication: Pulmonary haemosiderosis
  2. OBINUTUZUMAB [Suspect]
     Active Substance: OBINUTUZUMAB
     Indication: Pulmonary haemosiderosis
     Dosage: PLANNED DOSE IS 330 MG EVERY 6 MONTHS FOR 2 YEARS.

REACTIONS (5)
  - Anaphylactic reaction [Unknown]
  - Serum sickness-like reaction [Unknown]
  - B-lymphocyte count decreased [Unknown]
  - Off label use [Unknown]
  - Off label use [Unknown]
